FAERS Safety Report 8203866-2 (Version None)
Quarter: 2012Q1

REPORT INFORMATION
  Report Type: 
  Country: None (occurrence: None)
  Receive Date: 20120308
  Receipt Date: 20120229
  Transmission Date: 20120608
  Serious: Yes (Life-Threatening, Other)
  Sender: FDA-Public Use
  Company Number: 2012SP008767

PATIENT
  Age: 47 Year
  Sex: Female
  Weight: 62 kg

DRUGS (10)
  1. HEPARIN [Concomitant]
  2. KEPPRA [Concomitant]
  3. FRAGMIN [Concomitant]
  4. GRANISETRON [Concomitant]
  5. TEMODAL [Suspect]
     Indication: ASTROCYTOMA
     Dosage: 120 MG;QD;PO ; 120 MG;QD;PO
     Route: 048
     Dates: start: 20111207, end: 20111213
  6. TEMODAL [Suspect]
     Indication: ASTROCYTOMA
     Dosage: 120 MG;QD;PO ; 120 MG;QD;PO
     Route: 048
     Dates: start: 20111227, end: 20120123
  7. MEXALEN [Concomitant]
  8. LORAZEPAM [Concomitant]
  9. PANTOPRAZOLE SODIUM [Concomitant]
  10. DEXAMETHASONE [Concomitant]

REACTIONS (3)
  - PNEUMOCYSTIS JIROVECI PNEUMONIA [None]
  - PANCYTOPENIA [None]
  - HYDROCEPHALUS [None]
